FAERS Safety Report 7902518-3 (Version None)
Quarter: 2011Q4

REPORT INFORMATION
  Report Type: 
  Country: None (occurrence: None)
  Receive Date: 20111108
  Receipt Date: 20111026
  Transmission Date: 20120403
  Serious: Yes (Hospitalization)
  Sender: FDA-Public Use
  Company Number: US-ELI_LILLY_AND_COMPANY-US201111001033

PATIENT
  Sex: Female

DRUGS (3)
  1. FORTEO [Suspect]
     Indication: OSTEOPOROSIS
     Dosage: 20 UG, QD
     Dates: start: 20110201
  2. PRILOSEC [Concomitant]
  3. FORTEO [Suspect]
     Dosage: 20 UG, QD

REACTIONS (3)
  - MASS [None]
  - PROCEDURAL PAIN [None]
  - JOINT DISLOCATION [None]
